FAERS Safety Report 8701984 (Version 2)
Quarter: 2012Q4

REPORT INFORMATION
  Report Type: 
  Country: US (occurrence: US)
  Receive Date: 20120803
  Receipt Date: 20120927
  Transmission Date: 20130627
  Serious: Yes (Other)
  Sender: FDA-Public Use
  Company Number: US-JNJFOC-20120715323

PATIENT
  Sex: Male

DRUGS (13)
  1. REMICADE [Suspect]
     Indication: RHEUMATOID ARTHRITIS
     Route: 042
     Dates: start: 20120725
  2. REMICADE [Suspect]
     Indication: RHEUMATOID ARTHRITIS
     Route: 042
     Dates: start: 20120628
  3. REMICADE [Suspect]
     Indication: RHEUMATOID ARTHRITIS
     Route: 042
     Dates: start: 20120611
  4. ALBUTEROL [Concomitant]
     Indication: RHINITIS ALLERGIC
     Dosage: dosage: 2 puffs as necessary
     Route: 048
  5. COREG [Concomitant]
     Indication: CARDIAC DISORDER
     Route: 065
  6. EXFORGE [Concomitant]
     Indication: HYPERTENSION
     Dosage: dose: 10/320 mg
     Route: 065
  7. HYDROCHLOROTHIAZIDE [Concomitant]
     Indication: HYPERTENSION
     Route: 065
  8. MAALOX [Concomitant]
     Indication: DYSPEPSIA
     Route: 065
  9. MAALOX [Concomitant]
     Indication: GASTROOESOPHAGEAL REFLUX DISEASE
     Route: 065
  10. PREDNISONE [Concomitant]
     Indication: ARTHRALGIA
     Route: 065
  11. ZOCOR [Concomitant]
     Indication: HYPERLIPIDAEMIA
     Route: 065
  12. TYLENOL WITH CODIENE [Concomitant]
     Indication: PAIN
     Dosage: dose: 300 mg/30 mg Dosage: q5 prn
     Route: 065
  13. ACETYLSALICYLIC ACID [Concomitant]
     Indication: CEREBROVASCULAR ACCIDENT PROPHYLAXIS
     Route: 048

REACTIONS (2)
  - Chest pain [Recovered/Resolved]
  - Palpitations [Unknown]
